FAERS Safety Report 23606439 (Version 3)
Quarter: 2024Q1

REPORT INFORMATION
  Report Type: Spontaneous
  Country: US (occurrence: US)
  Receive Date: 20240307
  Receipt Date: 20240311
  Transmission Date: 20240409
  Serious: No
  Sender: FDA-Public Use
  Company Number: US-PFIZER INC-202400058513

PATIENT
  Age: 73 Year
  Sex: Female
  Weight: 61.23 kg

DRUGS (2)
  1. CEFTAZIDIME [Suspect]
     Active Substance: CEFTAZIDIME
     Indication: Wound infection
     Dosage: 2 G, 3X/DAY
     Route: 042
     Dates: start: 202401
  2. TAZICEF [Suspect]
     Active Substance: CEFTAZIDIME
     Dosage: 2 G, 3X/DAY

REACTIONS (4)
  - Drug hypersensitivity [Not Recovered/Not Resolved]
  - Pruritus [Not Recovered/Not Resolved]
  - Rash erythematous [Unknown]
  - Off label use [Unknown]
